FAERS Safety Report 4292366-0 (Version None)
Quarter: 2004Q1

REPORT INFORMATION
  Report Type: 
  Country: None (occurrence: None)
  Receive Date: 20040126
  Receipt Date: 20030826
  Transmission Date: 20041129
  Serious: No
  Sender: FDA-Public Use
  Company Number: USA030845434

PATIENT
  Age: 76 Year
  Sex: Female
  Weight: 57 kg

DRUGS (3)
  1. FORTEO [Suspect]
     Indication: OSTEOPOROSIS
     Dates: start: 20030601
  2. LIPITOR [Concomitant]
  3. ASPIRIN [Concomitant]

REACTIONS (2)
  - MUSCLE CRAMP [None]
  - PAIN IN EXTREMITY [None]
